FAERS Safety Report 9511564 (Version 1)
Quarter: 2013Q1

REPORT INFORMATION
  Report Type: Spontaneous
  Country: US (occurrence: None)
  Receive Date: 20130305
  Receipt Date: 20130305
  Transmission Date: 20140127
  Serious: Yes (Hospitalization)
  Sender: FDA-Public Use
  Company Number: 163-21880-12103386

PATIENT
  Age: 77 Year
  Sex: Male

DRUGS (4)
  1. REVLIMID [Suspect]
     Indication: PLASMA CELL MYELOMA
     Dosage: 5 MG, 21 IN 21 D, PO
     Route: 048
     Dates: start: 20120927, end: 20121018
  2. METOPROLOL TARTRATE (METOPROLOL TARTRATE) (UNKNOWN) [Concomitant]
  3. POTASSIUM CHLORIDE (POTASSIUM CHLORIDE) (UNKNOWN) [Concomitant]
  4. AMIODARONE HCL (AMIODARONE HYDROCHLORIDE) (UNKNOWN) [Concomitant]

REACTIONS (2)
  - Pneumonia [None]
  - White blood cell count decreased [None]
